FAERS Safety Report 6296247-2 (Version None)
Quarter: 2009Q3

REPORT INFORMATION
  Report Type: 
  Country: None (occurrence: None)
  Receive Date: 20090804
  Receipt Date: 20090727
  Transmission Date: 20100115
  Serious: Yes (Other)
  Sender: FDA-Public Use
  Company Number: NSADSS2002005898

PATIENT
  Age: 52 Year
  Sex: Male

DRUGS (5)
  1. REMICADE [Suspect]
     Route: 041
  2. REMICADE [Suspect]
     Indication: RHEUMATOID ARTHRITIS
     Route: 041
  3. METHOTREXATE [Suspect]
     Indication: DRUG USE FOR UNKNOWN INDICATION
  4. NONSTEROIDAL ANTI-INFLAMMATORY AGENT (NOS) [Concomitant]
  5. ACFOL [Concomitant]

REACTIONS (2)
  - PLEURAL EFFUSION [None]
  - PULMONARY TUBERCULOSIS [None]
